FAERS Safety Report 8422739-3 (Version None)
Quarter: 2012Q2

REPORT INFORMATION
  Report Type: 
  Country: None (occurrence: None)
  Receive Date: 20120608
  Receipt Date: 20120529
  Transmission Date: 20120825
  Serious: Yes (Hospitalization, Disabling)
  Sender: FDA-Public Use
  Company Number: GB-BRISTOL-MYERS SQUIBB COMPANY-16396368

PATIENT
  Age: 40 Year
  Sex: Male
  Weight: 73 kg

DRUGS (1)
  1. IPILIMUMAB [Suspect]
     Indication: MALIGNANT MELANOMA
     Dosage: RECEIVED 4 INFUSIONS A078090 24DC11 A079284 17JAN12 A080435 7FB12
     Route: 042
     Dates: start: 20111202, end: 20120206

REACTIONS (4)
  - PHOTOPHOBIA [None]
  - OCULAR HYPERAEMIA [None]
  - HEADACHE [None]
  - DIARRHOEA [None]
